FAERS Safety Report 12216592 (Version 1)
Quarter: 2016Q1

REPORT INFORMATION
  Report Type: Spontaneous
  Country: US (occurrence: None)
  Receive Date: 20160328
  Receipt Date: 20160328
  Transmission Date: 20160526
  Serious: Yes (Hospitalization)
  Sender: FDA-Public Use
  Company Number: None

PATIENT
  Age: 65 Year
  Sex: Male
  Weight: 117.7 kg

DRUGS (1)
  1. CAPSAICIN. [Suspect]
     Active Substance: CAPSAICIN
     Indication: PAIN
     Dates: start: 20150802, end: 20160113

REACTIONS (3)
  - Palpitations [None]
  - Atrial fibrillation [None]
  - Heart rate irregular [None]

NARRATIVE: CASE EVENT DATE: 20160113
